FAERS Safety Report 11643102 (Version 3)
Quarter: 2016Q2

REPORT INFORMATION
  Report Type: Spontaneous
  Country: US (occurrence: US)
  Receive Date: 20151020
  Receipt Date: 20160616
  Transmission Date: 20160815
  Serious: Yes (Hospitalization)
  Sender: FDA-Public Use
  Company Number: US-BAYER-2015-445163

PATIENT
  Age: 29 Year
  Sex: Female
  Weight: 90 kg

DRUGS (3)
  1. ZOLOFT [Concomitant]
     Active Substance: SERTRALINE HYDROCHLORIDE
     Indication: HEADACHE
     Dosage: 25 MG, UNK
  2. MIRENA [Suspect]
     Active Substance: LEVONORGESTREL
     Indication: CONTRACEPTION
     Dosage: 20 MCG/24HR, CONT
     Route: 015
     Dates: start: 20141103, end: 20150204
  3. NUVARING [Concomitant]
     Active Substance: ETHINYL ESTRADIOL\ETONOGESTREL
     Dosage: UNK
     Dates: start: 2014

REACTIONS (8)
  - Abdominal discomfort [Not Recovered/Not Resolved]
  - Injury [Not Recovered/Not Resolved]
  - Anxiety [None]
  - Device issue [Not Recovered/Not Resolved]
  - Uterine perforation [Not Recovered/Not Resolved]
  - Pain [None]
  - Abdominal pain lower [Not Recovered/Not Resolved]
  - Emotional distress [None]

NARRATIVE: CASE EVENT DATE: 201411
